FAERS Safety Report 26135841 (Version 1)
Quarter: 2025Q4

REPORT INFORMATION
  Report Type: Spontaneous
  Country: US (occurrence: None)
  Receive Date: 20251209
  Receipt Date: 20251209
  Transmission Date: 20260118
  Serious: Yes (Hospitalization)
  Sender: FDA-CTU
  Company Number: None

PATIENT
  Age: 65 Year
  Sex: Male
  Weight: 121 kg

DRUGS (2)
  1. LISINOPRIL [Suspect]
     Active Substance: LISINOPRIL
     Indication: Swelling face
     Dosage: 20 MG EVERY DAY PO
     Route: 048
     Dates: start: 20230329, end: 20250311
  2. LISINOPRIL [Suspect]
     Active Substance: LISINOPRIL
     Indication: Throat tightness

REACTIONS (6)
  - Swelling face [None]
  - Throat tightness [None]
  - Influenza [None]
  - Sialoadenitis [None]
  - Obstructive airways disorder [None]
  - Therapy change [None]

NARRATIVE: CASE EVENT DATE: 20250311
